FAERS Safety Report 7537048-4 (Version None)
Quarter: 2011Q2

REPORT INFORMATION
  Report Type: 
  Country: None (occurrence: None)
  Receive Date: 20110609
  Receipt Date: 20110526
  Transmission Date: 20111010
  Serious: Yes (Life-Threatening, Hospitalization, Other)
  Sender: FDA-Public Use
  Company Number: PHHY2011FR43915

PATIENT
  Age: 34 Year
  Sex: Female

DRUGS (4)
  1. PROSTAGLANDINS [Suspect]
  2. MIFEPRISTONE (MIFEPREX) [Suspect]
     Indication: ABORTION INDUCED
  3. METHERGINE [Suspect]
     Dosage: UNK
     Route: 048
     Dates: start: 20070701
  4. CYTOTEC [Suspect]
     Indication: ABORTION INDUCED

REACTIONS (7)
  - RENAL DISORDER [None]
  - ESCHERICHIA INFECTION [None]
  - RENAL FAILURE ACUTE [None]
  - FIBROMA [None]
  - SEPTIC SHOCK [None]
  - TRANSPLANT REJECTION [None]
  - THROMBOSIS [None]
